FAERS Safety Report 5843274-2 (Version None)
Quarter: 2008Q3

REPORT INFORMATION
  Report Type: 
  Country: None (occurrence: None)
  Receive Date: 20080813
  Receipt Date: 20080806
  Transmission Date: 20090109
  Serious: Yes (Hospitalization, Other)
  Sender: FDA-Public Use
  Company Number: KR-WYE-H00703507

PATIENT
  Sex: Male
  Weight: 59.4 kg

DRUGS (4)
  1. SIROLIMUS [Suspect]
     Indication: PROPHYLAXIS AGAINST TRANSPLANT REJECTION
     Route: 048
     Dates: start: 20070721
  2. BISOPROLOL FUMARATE [Concomitant]
     Indication: HYPERTENSION
     Route: 048
     Dates: start: 20070831
  3. AMLODIPINE BESYLATE [Concomitant]
     Indication: HYPERTENSION
     Route: 048
     Dates: start: 20070921
  4. SEPTRIN [Concomitant]
     Indication: PROPHYLAXIS
     Dosage: 10 (UNITS NOT PROVIDED), TWICE DAILY
     Route: 048
     Dates: start: 20070726

REACTIONS (1)
  - HYPERGLYCAEMIA [None]
